FAERS Safety Report 24559940 (Version 5)
Quarter: 2025Q1

REPORT INFORMATION
  Report Type: Spontaneous
  Country: US (occurrence: US)
  Receive Date: 20241029
  Receipt Date: 20250327
  Transmission Date: 20250409
  Serious: No
  Sender: BIOGEN
  Company Number: US-BIOGEN-2024BI01288203

PATIENT
  Age: 78 Year
  Sex: Female

DRUGS (2)
  1. TYSABRI [Suspect]
     Active Substance: NATALIZUMAB
     Indication: Multiple sclerosis
     Route: 050
     Dates: start: 20180809, end: 20210421
  2. TYSABRI [Suspect]
     Active Substance: NATALIZUMAB
     Route: 050
     Dates: start: 20241213

REACTIONS (8)
  - Musculoskeletal disorder [Unknown]
  - Malaise [Unknown]
  - Balance disorder [Unknown]
  - Swelling [Unknown]
  - Asthenia [Unknown]
  - Hypotension [Unknown]
  - Oxygen saturation decreased [Unknown]
  - Fatigue [Unknown]

NARRATIVE: CASE EVENT DATE: 20250129
